FAERS Safety Report 12217612 (Version 1)
Quarter: 2016Q1

REPORT INFORMATION
  Report Type: Report from Study
  Country: BR (occurrence: BR)
  Receive Date: 20160329
  Receipt Date: 20160329
  Transmission Date: 20160526
  Serious: Yes (Hospitalization)
  Sender: FDA-Public Use
  Company Number: PHHY2016BR041038

PATIENT
  Sex: Female
  Weight: 25 kg

DRUGS (1)
  1. EXJADE [Suspect]
     Active Substance: DEFERASIROX
     Indication: SICKLE CELL ANAEMIA
     Dosage: 1000 MG, QD (40 MG/KG) ON MONDAY AND 500 MG, QD (20 MG/KG) FROM TUESDAY TO SUNDAY
     Route: 048

REACTIONS (5)
  - Asthma [Recovered/Resolved]
  - Abdominal pain [Recovered/Resolved]
  - Serum ferritin increased [Recovered/Resolved]
  - Chest pain [Recovered/Resolved]
  - Pneumonia [Recovered/Resolved]
